FAERS Safety Report 23052125 (Version 1)
Quarter: 2023Q4

REPORT INFORMATION
  Report Type: Spontaneous
  Country: US (occurrence: US)
  Receive Date: 20231010
  Receipt Date: 20231010
  Transmission Date: 20240110
  Serious: No
  Sender: FDA-Public Use
  Company Number: US-AMGEN-USASP2023177079

PATIENT
  Age: 13 Year
  Sex: Male

DRUGS (9)
  1. BEVACIZUMAB [Suspect]
     Active Substance: BEVACIZUMAB
     Indication: Ocular ischaemic syndrome
     Dosage: UNK
  2. ACETAZOLAMIDE [Concomitant]
     Active Substance: ACETAZOLAMIDE
     Indication: Glaucoma
     Route: 048
  3. BRIMONIDINE [Concomitant]
     Active Substance: BRIMONIDINE TARTRATE
     Indication: Glaucoma
     Route: 061
  4. DORZOLAMIDE\TIMOLOL [Concomitant]
     Active Substance: DORZOLAMIDE\TIMOLOL
     Indication: Glaucoma
  5. LATANOPROST [Concomitant]
     Active Substance: LATANOPROST
     Indication: Ocular ischaemic syndrome
  6. ENOXAPARIN [Concomitant]
     Active Substance: ENOXAPARIN
     Indication: Ocular ischaemic syndrome
     Route: 065
  7. METHYLPREDNISOLONE [Concomitant]
     Active Substance: METHYLPREDNISOLONE
     Indication: Ocular ischaemic syndrome
     Dosage: HIGH-DOSE
  8. PREDNISONE [Concomitant]
     Active Substance: PREDNISONE
     Indication: Ocular ischaemic syndrome
     Route: 048
  9. MANNITOL [Concomitant]
     Active Substance: MANNITOL
     Indication: Ocular ischaemic syndrome

REACTIONS (1)
  - Off label use [Unknown]
